FAERS Safety Report 18387664 (Version 2)
Quarter: 2020Q4

REPORT INFORMATION
  Report Type: Report from Study
  Country: US (occurrence: US)
  Receive Date: 20201015
  Receipt Date: 20201029
  Transmission Date: 20210114
  Serious: No
  Sender: FDA-Public Use
  Company Number: NVSC2020US274920

PATIENT
  Sex: Female

DRUGS (1)
  1. ENTRESTO [Suspect]
     Active Substance: SACUBITRIL\VALSARTAN
     Indication: PRODUCT USED FOR UNKNOWN INDICATION
     Dosage: 50 MG, BID (24/26 MG) (STARTED A MONTH AGO)
     Route: 048

REACTIONS (5)
  - Nasopharyngitis [Unknown]
  - Product dose omission issue [Unknown]
  - Fatigue [Unknown]
  - Brain natriuretic peptide abnormal [Unknown]
  - Feeling abnormal [Unknown]
